FAERS Safety Report 6208609-X (Version None)
Quarter: 2009Q2

REPORT INFORMATION
  Report Type: 
  Country: None (occurrence: None)
  Receive Date: 20090529
  Receipt Date: 20090519
  Transmission Date: 20091009
  Serious: Yes (Hospitalization)
  Sender: FDA-Public Use
  Company Number: FR-CELGENEUS-056-20484-09051322

PATIENT
  Sex: Female
  Weight: 69 kg

DRUGS (1)
  1. INNOHEP [Suspect]
     Route: 058
     Dates: start: 20081101, end: 20081201

REACTIONS (1)
  - POLYDIPSIA [None]
